FAERS Safety Report 14917293 (Version 2)
Quarter: 2019Q2

REPORT INFORMATION
  Report Type: Report from Study
  Country: AU (occurrence: AU)
  Receive Date: 20180521
  Receipt Date: 20190607
  Transmission Date: 20190711
  Serious: Yes (Hospitalization)
  Sender: FDA-Public Use
  Company Number: AU-REGENERON PHARMACEUTICALS, INC.-2018-24024

PATIENT

DRUGS (3)
  1. EYLEA [Suspect]
     Active Substance: AFLIBERCEPT
     Indication: NEOVASCULAR AGE-RELATED MACULAR DEGENERATION
     Dosage: UNK, EVERY 3 MONTHS OR AS NEEDED, RIGHT EYE
     Route: 031
     Dates: start: 20171001
  2. EYLEA [Suspect]
     Active Substance: AFLIBERCEPT
     Dosage: UNK, EVERY 3 MONTHS OR AS NEEDED, RIGHT EYE
     Route: 031
  3. ASPIRIN                            /00002701/ [Concomitant]
     Active Substance: ASPIRIN
     Indication: PRODUCT USED FOR UNKNOWN INDICATION
     Dosage: UNK
     Dates: end: 201804

REACTIONS (5)
  - Intraocular pressure increased [Unknown]
  - Cataract [Unknown]
  - Lacrimation increased [Unknown]
  - Vitreous detachment [Recovering/Resolving]
  - Hyphaema [Unknown]

NARRATIVE: CASE EVENT DATE: 201801
